FAERS Safety Report 12771315 (Version 1)
Quarter: 2016Q3

REPORT INFORMATION
  Report Type: Spontaneous
  Country: US (occurrence: US)
  Receive Date: 20160922
  Receipt Date: 20160922
  Transmission Date: 20161109
  Serious: No
  Sender: FDA-Public Use
  Company Number: US-TARO-2016TAR00051

PATIENT
  Age: 1 Year
  Sex: Male

DRUGS (2)
  1. LORATADINE SYRUP (LORATADINE ORAL SOLUTION USP) 5MG/5ML [Suspect]
     Active Substance: LORATADINE
     Dosage: 2.5 ML, 1X/DAY
     Route: 048
     Dates: start: 20160114, end: 20160117
  2. LORATADINE SYRUP (LORATADINE ORAL SOLUTION USP) 5MG/5ML [Suspect]
     Active Substance: LORATADINE
     Indication: HYPERSENSITIVITY
     Dosage: 5 ML, ONCE
     Route: 048
     Dates: start: 20160118, end: 20160118

REACTIONS (4)
  - Secretion discharge [Recovering/Resolving]
  - Accidental overdose [Recovered/Resolved]
  - Cough [Recovering/Resolving]
  - Vomiting [Recovered/Resolved]

NARRATIVE: CASE EVENT DATE: 20160116
